FAERS Safety Report 8225662-2 (Version None)
Quarter: 2012Q1

REPORT INFORMATION
  Report Type: 
  Country: None (occurrence: None)
  Receive Date: 20120321
  Receipt Date: 20120313
  Transmission Date: 20120608
  Serious: Yes (Death)
  Sender: FDA-Public Use
  Company Number: PA-PFIZER INC-2012070849

PATIENT
  Age: 70 Year
  Sex: Female

DRUGS (1)
  1. PANTOPRAZOLE [Suspect]
     Dosage: 20 MG, UNK

REACTIONS (1)
  - DEATH [None]
